FAERS Safety Report 4865294-7 (Version None)
Quarter: 2005Q4

REPORT INFORMATION
  Report Type: 
  Country: None (occurrence: None)
  Receive Date: 20051221
  Receipt Date: 20051221
  Transmission Date: 20060501
  Serious: Yes (Other)
  Sender: FDA-Public Use
  Company Number: None

PATIENT
  Age: 71 Year
  Sex: Female
  Weight: 71.6683 kg

DRUGS (6)
  1. ZOCOR [Suspect]
     Indication: HYPERLIPIDAEMIA
     Dosage: 20 MG PO DAILY
     Route: 048
     Dates: start: 20051015, end: 20051024
  2. ELAVIL [Concomitant]
  3. ZOLOFT [Concomitant]
  4. METOPROLOL [Concomitant]
  5. ASPIRIN [Concomitant]
  6. VIT E [Concomitant]

REACTIONS (2)
  - MYALGIA [None]
  - TINNITUS [None]
